FAERS Safety Report 8610064 (Version 2)
Quarter: 2014Q1

REPORT INFORMATION
  Report Type: Spontaneous
  Country: US (occurrence: None)
  Receive Date: 20120323
  Receipt Date: 20130305
  Transmission Date: 20141002
  Serious: Yes (Life-Threatening, Hospitalization)
  Sender: FDA-Public Use
  Company Number: 163-21880-11120392

PATIENT
  Age: 54 Year
  Sex: Male
  Weight: 93.9 kg

DRUGS (10)
  1. REVLIMID (LENALIDOMIDE) (25 MILLIGRAM, CAPSULES) [Suspect]
     Indication: PLASMA CELL MYELOMA
     Dosage: 25 MG, QD X 14 DAYS, PO
     Route: 048
     Dates: start: 20110524
  2. PRADAXA (DABIGATRAN ETEXILATE MESILATE) (UNKNOWN)? [Concomitant]
  3. ASPIRIN (ACETYLSALICYLIC ACID) (UNKNOWN) (ACETYLSALICYLIC ACID) [Concomitant]
  4. CALCIUM WITH VITAMIN D (CALCIUM WITH VITAMIN D)(UNKNOWN) [Concomitant]
  5. GABAPENTIN (GABAPENTIN) (UNKNOWN) (GABAPENTIN) [Concomitant]
  6. MELOXICAM (MELOXICAM) (UNKNOWN) [Concomitant]
  7. PLAVIX (CLOPIDOGREL SULFATE) (UNKNOWN) [Concomitant]
  8. VITAMIN B12 (CYANOCOBALAMIN) (UNKNOWN) [Concomitant]
  9. ZOMETA (ZOLEDRONIC ACID) (UNKNOWN) [Concomitant]
  10. DEXAMETHASONE (DEXAMETHASONE) (UNKNOWN) [Concomitant]

REACTIONS (1)
  - Transient ischaemic attack [None]
